FAERS Safety Report 7680936-9 (Version None)
Quarter: 2011Q3

REPORT INFORMATION
  Report Type: 
  Country: None (occurrence: None)
  Receive Date: 20110811
  Receipt Date: 20110811
  Transmission Date: 20111222
  Serious: Yes (Hospitalization)
  Sender: FDA-Public Use
  Company Number: None

PATIENT
  Age: 90 Year
  Sex: Male

DRUGS (1)
  1. PROCRIT [Suspect]
     Dosage: 20,000 UNITS UNDER THE SKIN EVERY 2 WEEKS
     Dates: start: 20110601

REACTIONS (1)
  - ANGINA PECTORIS [None]
